FAERS Safety Report 20081551 (Version 1)
Quarter: 2021Q4

REPORT INFORMATION
  Report Type: Spontaneous
  Country: US (occurrence: None)
  Receive Date: 20211116
  Receipt Date: 20211116
  Transmission Date: 20220303
  Serious: No
  Sender: FDA-Public Use
  Company Number: None

PATIENT

DRUGS (2)
  1. TEMAZEPAM [Suspect]
     Active Substance: TEMAZEPAM
  2. REMERON [Suspect]
     Active Substance: MIRTAZAPINE

REACTIONS (1)
  - Product dispensing error [None]
